FAERS Safety Report 10290001 (Version 2)
Quarter: 2014Q3

REPORT INFORMATION
  Report Type: Spontaneous
  Country: TR (occurrence: None)
  Receive Date: 20140708
  Receipt Date: 20140722
  Transmission Date: 20150326
  Serious: Yes (Other)
  Sender: FDA-Public Use
  Company Number: DEP_02170_2014

PATIENT
  Age: 70 Year
  Sex: Male

DRUGS (3)
  1. GABAPENTIN. [Suspect]
     Active Substance: GABAPENTIN
     Indication: RESTLESS LEGS SYNDROME
     Dosage: (300 MG TID, TO BE GRADUALLY INCREASED)
  2. GABAPENTIN. [Suspect]
     Active Substance: GABAPENTIN
     Indication: OFF LABEL USE
     Dosage: (300 MG TID, TO BE GRADUALLY INCREASED)
  3. GABAPENTIN. [Suspect]
     Active Substance: GABAPENTIN
     Indication: NEURALGIA
     Dosage: (300 MG TID, TO BE GRADUALLY INCREASED)

REACTIONS (1)
  - Dyskinesia [None]
